FAERS Safety Report 9420050 (Version 1)
Quarter: 2013Q3

REPORT INFORMATION
  Report Type: Spontaneous
  Country: CN (occurrence: CN)
  Receive Date: 20130725
  Receipt Date: 20130725
  Transmission Date: 20140515
  Serious: Yes (Hospitalization)
  Sender: FDA-Public Use
  Company Number: CN-TEVA-421300ISR

PATIENT
  Sex: 0

DRUGS (2)
  1. AZILECT [Suspect]
     Indication: PARKINSON^S DISEASE
     Dosage: 1 MILLIGRAM DAILY;
     Route: 048
  2. LEVODOPA [Suspect]
     Indication: PARKINSON^S DISEASE
     Dosage: NO MORE THAN 800 MG/D FOR AT LEAST 2 WK

REACTIONS (28)
  - Chronic obstructive pulmonary disease [Unknown]
  - Dizziness [Unknown]
  - Headache [Unknown]
  - Pain [Unknown]
  - Fatigue [Unknown]
  - Somnolence [Unknown]
  - Myalgia [Unknown]
  - Malaise [Unknown]
  - Restlessness [Unknown]
  - Dyskinesia [Unknown]
  - Tension [Unknown]
  - Oedema [Unknown]
  - Dyspepsia [Unknown]
  - Abdominal pain [Unknown]
  - Nausea [Unknown]
  - Hepatic enzyme abnormal [Unknown]
  - Decreased appetite [Unknown]
  - Vomiting [Unknown]
  - Oropharyngeal pain [Unknown]
  - Rhinorrhoea [Unknown]
  - Leukopenia [Unknown]
  - Arthralgia [Unknown]
  - Fall [Unknown]
  - Urinary tract disorder [Unknown]
  - Weight fluctuation [Unknown]
  - Weight decreased [Unknown]
  - Erythema [Unknown]
  - Dry mouth [Unknown]
